FAERS Safety Report 5288024-6 (Version None)
Quarter: 2007Q2

REPORT INFORMATION
  Report Type: 
  Country: None (occurrence: None)
  Receive Date: 20070405
  Receipt Date: 20070322
  Transmission Date: 20071010
  Serious: Yes (Hospitalization, Other)
  Sender: FDA-Public Use
  Company Number: PHNU2007DE01315

PATIENT
  Sex: Male

DRUGS (2)
  1. TRILEPTAL [Suspect]
     Indication: EPILEPSY
     Dosage: UNK, UNK
     Dates: start: 20030101
  2. MARCUMAR [Concomitant]

REACTIONS (13)
  - ANOREXIA [None]
  - APATHY [None]
  - ARTHROPATHY [None]
  - ASTHMA [None]
  - CONSTIPATION [None]
  - CONVULSION [None]
  - CYANOSIS [None]
  - DYSPNOEA [None]
  - FATIGUE [None]
  - HERPES ZOSTER [None]
  - LABORATORY TEST ABNORMAL [None]
  - PRURITUS [None]
  - TREMOR [None]
